FAERS Safety Report 14692623 (Version 1)
Quarter: 2018Q1

REPORT INFORMATION
  Report Type: Other
  Country: GB (occurrence: GB)
  Receive Date: 20180329
  Receipt Date: 20180329
  Transmission Date: 20180509
  Serious: Yes (Death, Life-Threatening, Hospitalization)
  Sender: FDA-Public Use
  Company Number: GB-AXELLIA-001497

PATIENT
  Age: 73 Year
  Sex: Male

DRUGS (6)
  1. VANCOMYCIN [Suspect]
     Active Substance: VANCOMYCIN
     Indication: INFECTION
  2. INSULIN [Concomitant]
     Active Substance: INSULIN NOS
  3. PARACETAMOL [Concomitant]
     Active Substance: ACETAMINOPHEN
  4. TEMAZEPAM. [Concomitant]
     Active Substance: TEMAZEPAM
  5. IRON [Concomitant]
     Active Substance: IRON
  6. ACETYLSALICYLIC ACID [Concomitant]
     Active Substance: ASPIRIN

REACTIONS (5)
  - Pyrexia [Fatal]
  - Swollen tongue [Fatal]
  - Periorbital oedema [Fatal]
  - Rash maculo-papular [Fatal]
  - Mouth ulceration [Fatal]
